FAERS Safety Report 23480806 (Version 1)
Quarter: 2024Q1

REPORT INFORMATION
  Report Type: Spontaneous
  Country: US (occurrence: US)
  Receive Date: 20240205
  Receipt Date: 20240205
  Transmission Date: 20240410
  Serious: No
  Sender: FDA-Public Use
  Company Number: US-AMRYT PHARMACEUTICALS DAC-AEGR006150

PATIENT
  Sex: Female

DRUGS (11)
  1. METRELEPTIN [Suspect]
     Active Substance: METRELEPTIN
     Indication: Acquired generalised lipodystrophy
     Dosage: UNK
  2. INSULIN GLARGINE [Concomitant]
     Active Substance: INSULIN GLARGINE
     Indication: Diabetes mellitus
     Dosage: 100 IU INTERNATIONAL UNIT(S), BID
     Route: 058
     Dates: start: 20220629
  3. INSULIN NOS [Concomitant]
     Active Substance: INSULIN NOS
     Indication: Diabetes mellitus
     Dosage: CONTINOUS PUMP 12:00 - 06:00, 3.5 IU/HR
     Route: 057
     Dates: start: 20221113
  4. INSULIN NOS [Concomitant]
     Active Substance: INSULIN NOS
     Dosage: CONTINOUS PUMP  06:00 -18:00, 3.0 IU/HR
     Route: 057
     Dates: start: 20221113
  5. INSULIN NOS [Concomitant]
     Active Substance: INSULIN NOS
     Dosage: CONTINOUS PUMP 18:00-24:00, 3.5 IU/HR
     Route: 057
     Dates: start: 20221113
  6. ZOFRAN [Concomitant]
     Active Substance: ONDANSETRON HYDROCHLORIDE
     Indication: Abdominal pain
     Dosage: 4 MILLIGRAM, PRN, Q8HRS
     Route: 048
     Dates: start: 20220408
  7. CYMBALTA [Concomitant]
     Active Substance: DULOXETINE HYDROCHLORIDE
     Indication: Depression
     Dosage: 20 MILLIGRAM, QD
     Route: 048
     Dates: start: 20220131
  8. GABAPENTIN [Concomitant]
     Active Substance: GABAPENTIN
     Indication: Product used for unknown indication
     Dosage: 300 MILLIGRAM, QD
     Route: 048
     Dates: start: 20190611
  9. GABAPENTIN [Concomitant]
     Active Substance: GABAPENTIN
     Dosage: 300 MILLIGRAM, QD
     Route: 048
     Dates: start: 20190611
  10. GABAPENTIN [Concomitant]
     Active Substance: GABAPENTIN
     Dosage: 600 MILLIGRAM, QD
     Route: 048
     Dates: start: 20190611
  11. TYLENOL [Concomitant]
     Active Substance: ACETAMINOPHEN
     Indication: Pain
     Dosage: 325 MILLIGRAM, PRN
     Route: 048
     Dates: start: 201904

REACTIONS (1)
  - Neutralising antibodies positive [Unknown]
